FAERS Safety Report 4360106-2 (Version None)
Quarter: 2004Q2

REPORT INFORMATION
  Report Type: 
  Country: None (occurrence: None)
  Receive Date: 20040519
  Receipt Date: 20040510
  Transmission Date: 20050107
  Serious: Yes (Other)
  Sender: FDA-Public Use
  Company Number: PHBS2004ES06192

PATIENT
  Age: 62 Year
  Sex: Female

DRUGS (2)
  1. FAMVIR [Suspect]
     Indication: HERPES ZOSTER
     Route: 048
     Dates: start: 20040316, end: 20040322
  2. TELMISARTAN [Concomitant]
     Route: 048

REACTIONS (1)
  - HYPOTENSION [None]
